FAERS Safety Report 8113439-8 (Version None)
Quarter: 2012Q1

REPORT INFORMATION
  Report Type: 
  Country: None (occurrence: None)
  Receive Date: 20120203
  Receipt Date: 20120202
  Transmission Date: 20120608
  Serious: Yes (Death, Other)
  Sender: FDA-Public Use
  Company Number: PHHY2012NL000671

PATIENT
  Sex: Male
  Weight: 52 kg

DRUGS (16)
  1. ZOMETA [Suspect]
     Dosage: 4 MG/5 ML, ONCE PER 28 DAYS
     Route: 042
     Dates: start: 20111201
  2. ZOMETA [Suspect]
     Dosage: 4 MG/5 ML, ONCE PER 28 DAYS
     Route: 042
     Dates: start: 20120104
  3. BUMETANIDE [Concomitant]
     Dosage: 1 MG, QD
  4. FENTANYL CITRATE [Concomitant]
     Dosage: 150 MG, ONCE PER 3 DAYS
  5. ACETYLCYSTEINE [Concomitant]
     Dosage: 200 MG, QID
  6. OXYCODONE HCL [Concomitant]
     Dosage: 5 AS NEEDED
  7. OMEPRAZOLE [Concomitant]
     Dosage: 20 MG, BID
  8. DOMPERIDONE [Concomitant]
     Dosage: 60 MG, PRN
  9. ZOMETA [Suspect]
     Dosage: 4 MG, UNK
     Dates: start: 20101006
  10. ACETAMINOPHEN [Concomitant]
     Dosage: 1000 MG, QID
  11. AMOXICILLIN [Concomitant]
  12. ZOMETA [Suspect]
     Dosage: 4 MG/5 ML, ONCE PER 28 DAYS
     Route: 042
     Dates: start: 20110103
  13. BISACODYL [Concomitant]
  14. BACLOFEN [Concomitant]
  15. MOVICOLON [Concomitant]
  16. OXAZEPAM [Concomitant]

REACTIONS (7)
  - NEOPLASM MALIGNANT [None]
  - GENERAL PHYSICAL HEALTH DETERIORATION [None]
  - MALAISE [None]
  - TERMINAL STATE [None]
  - NEOPLASM PROGRESSION [None]
  - NUTRITIONAL CONDITION ABNORMAL [None]
  - RESPIRATION ABNORMAL [None]
